FAERS Safety Report 10873521 (Version 1)
Quarter: 2015Q1

REPORT INFORMATION
  Report Type: Spontaneous
  Country: US (occurrence: None)
  Receive Date: 20150223
  Receipt Date: 20150223
  Transmission Date: 20150721
  Serious: Yes (Hospitalization)
  Sender: FDA-Public Use
  Company Number: None

PATIENT
  Age: 53 Year
  Sex: Female
  Weight: 80 kg

DRUGS (13)
  1. MULTIVITAMIN [Concomitant]
     Active Substance: VITAMINS
  2. NYSTATINE [Concomitant]
  3. PANTOPRAZOLE [Concomitant]
     Active Substance: PANTOPRAZOLE SODIUM
  4. GABAPENTIN. [Concomitant]
     Active Substance: GABAPENTIN
  5. FENTANYL. [Concomitant]
     Active Substance: FENTANYL
  6. VANCOMYCIN [Concomitant]
     Active Substance: VANCOMYCIN
  7. ACETAMINOPHEN. [Concomitant]
     Active Substance: ACETAMINOPHEN
  8. ASCORBIC ACID. [Concomitant]
     Active Substance: ASCORBIC ACID
  9. MEROPENEM. [Suspect]
     Active Substance: MEROPENEM
     Indication: INFECTED SKIN ULCER
     Route: 042
     Dates: start: 20150105, end: 20150114
  10. HEPARIN [Concomitant]
     Active Substance: HEPARIN SODIUM
  11. LORAZEPAM. [Concomitant]
     Active Substance: LORAZEPAM
  12. HYDROMORPHONE [Concomitant]
     Active Substance: HYDROMORPHONE
  13. DOCUSATE [Concomitant]
     Active Substance: DOCUSATE

REACTIONS (2)
  - Eosinophilia [None]
  - Rash [None]

NARRATIVE: CASE EVENT DATE: 20150114
